FAERS Safety Report 7933797-4 (Version None)
Quarter: 2011Q4

REPORT INFORMATION
  Report Type: 
  Country: None (occurrence: None)
  Receive Date: 20111122
  Receipt Date: 20111116
  Transmission Date: 20120403
  Serious: Yes (Life-Threatening, Hospitalization)
  Sender: FDA-Public Use
  Company Number: JP-ELI_LILLY_AND_COMPANY-JP201012005359

PATIENT
  Sex: Male
  Weight: 85 kg

DRUGS (4)
  1. BASEN [Concomitant]
     Dosage: 3 TABLETS, 3/D
     Route: 048
     Dates: start: 20101102
  2. GEMZAR [Suspect]
     Dosage: 1800 MG, OTHER
     Route: 042
     Dates: start: 20100921, end: 20101207
  3. MAGNESIUM SULFATE [Concomitant]
     Dosage: 4 D/F, 2/D
     Route: 048
     Dates: start: 20100601
  4. GEMZAR [Suspect]
     Indication: PANCREATIC CARCINOMA STAGE III
     Dosage: 1800 MG, OTHER
     Route: 042
     Dates: start: 20100803, end: 20100901

REACTIONS (1)
  - THROMBOTIC MICROANGIOPATHY [None]
